FAERS Safety Report 4511113-8 (Version None)
Quarter: 2004Q4

REPORT INFORMATION
  Report Type: 
  Country: None (occurrence: None)
  Receive Date: 20041012
  Receipt Date: 20040719
  Transmission Date: 20050328
  Serious: No
  Sender: FDA-Public Use
  Company Number: PHEH2004US07914

PATIENT
  Age: 78 Year
  Sex: Female

DRUGS (1)
  1. ELIDEL [Suspect]

REACTIONS (6)
  - ACCIDENTAL EXPOSURE [None]
  - ASTHENIA [None]
  - DRY MOUTH [None]
  - FEELING ABNORMAL [None]
  - FEELING COLD [None]
  - NERVOUSNESS [None]
